FAERS Safety Report 12223139 (Version 2)
Quarter: 2016Q2

REPORT INFORMATION
  Report Type: Spontaneous
  Country: US (occurrence: US)
  Receive Date: 20160330
  Receipt Date: 20160415
  Transmission Date: 20160815
  Serious: No
  Sender: FDA-Public Use
  Company Number: US-PFIZER INC-2016178813

PATIENT
  Sex: Female

DRUGS (1)
  1. LYRICA [Suspect]
     Active Substance: PREGABALIN
     Dosage: 50 MG, 1X/DAY
     Dates: start: 2016

REACTIONS (6)
  - Sedation [Unknown]
  - Dizziness [Unknown]
  - Poor quality sleep [Unknown]
  - Somnolence [Unknown]
  - Activities of daily living impaired [Unknown]
  - Fatigue [Unknown]
